FAERS Safety Report 8233757-2 (Version None)
Quarter: 2012Q1

REPORT INFORMATION
  Report Type: 
  Country: None (occurrence: None)
  Receive Date: 20120321
  Receipt Date: 20120309
  Transmission Date: 20120608
  Serious: Yes (Other)
  Sender: FDA-Public Use
  Company Number: 2012MA003276

PATIENT
  Age: 34 Year
  Sex: Female

DRUGS (7)
  1. CYMBALTA [Suspect]
     Indication: DEPRESSION
     Dosage: 60 MG;QD
  2. PHENYTOIN [Suspect]
     Indication: MYOTONIA
     Dosage: 350 MG;QD
  3. OMEPRAZOLE [Suspect]
     Dosage: 20 MG;QD
  4. GABAPENTIN [Suspect]
     Indication: MYOTONIA
     Dosage: 800 MG;QID
  5. PREDNISONE TAB [Suspect]
     Indication: MYOTONIA
     Dosage: 10 MG;QD
  6. AZATHIOPRINE [Suspect]
     Indication: MYOTONIA
     Dosage: 125 MG;QD
  7. CALCIMAGON [Concomitant]

REACTIONS (2)
  - MATERNAL EXPOSURE DURING PREGNANCY [None]
  - PREGNANCY [None]
